FAERS Safety Report 10956335 (Version 1)
Quarter: 2015Q1

REPORT INFORMATION
  Report Type: Spontaneous
  Country: GB (occurrence: None)
  Receive Date: 20150324
  Receipt Date: 20150324
  Transmission Date: 20150721
  Serious: Yes (Other)
  Sender: FDA-Public Use
  Company Number: NL01PV15_38725

PATIENT
  Age: 64 Year
  Sex: Male
  Weight: 94 kg

DRUGS (6)
  1. BENDROFLUMETHIAZIDE [Concomitant]
     Active Substance: BENDROFLUMETHIAZIDE
  2. WARFARIN SODIUM. [Concomitant]
     Active Substance: WARFARIN SODIUM
  3. UNKNOWN (BISOPROLOL) [Concomitant]
  4. CINNARIZINE [Concomitant]
     Active Substance: CINNARIZINE
  5. GLYCERYL TRINITRATE [Concomitant]
     Active Substance: NITROGLYCERIN
  6. UNKNOWN (TAMSULOSIN) UNKNOWN [Suspect]
     Active Substance: TAMSULOSIN
     Dosage: 1 DF, QD
     Dates: start: 20140429

REACTIONS (1)
  - Painful erection [None]

NARRATIVE: CASE EVENT DATE: 20150310
